FAERS Safety Report 13028896 (Version 3)
Quarter: 2017Q1

REPORT INFORMATION
  Report Type: Spontaneous
  Country: DK (occurrence: DK)
  Receive Date: 20161214
  Receipt Date: 20170126
  Transmission Date: 20170428
  Serious: Yes (Other)
  Sender: FDA-Public Use
  Company Number: PHHY2016DK167399

PATIENT
  Age: 32 Year
  Sex: Male

DRUGS (2)
  1. LAMOTRIGIN [Concomitant]
     Active Substance: LAMOTRIGINE
     Indication: EPILEPSY
     Dosage: 50 MG, BID,STYRKE: 50 MG.
     Route: 048
  2. LAMOTRIGIN 1A PHARMA [Suspect]
     Active Substance: LAMOTRIGINE
     Indication: EPILEPSY
     Dosage: 200 MG, BID, STRENGTH: 200 MG.
     Route: 048
     Dates: start: 20161120, end: 20161124

REACTIONS (3)
  - Product substitution issue [Recovered/Resolved]
  - Epilepsy [Recovered/Resolved]
  - Drug ineffective [Recovered/Resolved]

NARRATIVE: CASE EVENT DATE: 20161120
